FAERS Safety Report 14324239 (Version 2)
Quarter: 2018Q1

REPORT INFORMATION
  Report Type: Report from Study
  Country: CO (occurrence: CO)
  Receive Date: 20171226
  Receipt Date: 20180212
  Transmission Date: 20180509
  Serious: Yes (Hospitalization)
  Sender: FDA-Public Use
  Company Number: PHHY2017CO190988

PATIENT
  Sex: Male
  Weight: 51 kg

DRUGS (1)
  1. EXJADE [Suspect]
     Active Substance: DEFERASIROX
     Indication: IRON OVERLOAD
     Dosage: 500 MG, QD
     Route: 048
     Dates: start: 20161015

REACTIONS (4)
  - Drug ineffective [Unknown]
  - Infection [Unknown]
  - Hiccups [Unknown]
  - Acute leukaemia [Unknown]
